FAERS Safety Report 20585291 (Version 9)
Quarter: 2022Q4

REPORT INFORMATION
  Report Type: Spontaneous
  Country: CA (occurrence: CA)
  Receive Date: 20220312
  Receipt Date: 20221018
  Transmission Date: 20230113
  Serious: Yes (Other)
  Sender: FDA-Public Use
  Company Number: CA-CELLTRION INC.-2021CA001725

PATIENT

DRUGS (21)
  1. INFLECTRA [Suspect]
     Active Substance: INFLIXIMAB-DYYB
     Indication: Colitis ulcerative
     Dosage: 5 MG/KG Q WEEK 0, 2, 6, THEN EVERY 8 WEEKS
     Route: 042
     Dates: start: 20201027, end: 20210202
  2. INFLECTRA [Suspect]
     Active Substance: INFLIXIMAB-DYYB
     Indication: Colitis ulcerative
     Dosage: 5 MG/KG, EVERY 8 WEEKS (INCLUDES INDUCTION AT WEEK 0, 2, 6)
     Route: 042
     Dates: start: 20201208
  3. INFLECTRA [Suspect]
     Active Substance: INFLIXIMAB-DYYB
     Dosage: 5 MG/KG, EVERY 8 WEEKS (INCLUDES INDUCTION AT WEEK 0, 2, 6)
     Route: 042
     Dates: start: 20210202
  4. INFLECTRA [Suspect]
     Active Substance: INFLIXIMAB-DYYB
     Dosage: 5 MG/KG, EVERY 6 WEEKS
     Route: 042
     Dates: start: 20210316, end: 20211014
  5. INFLECTRA [Suspect]
     Active Substance: INFLIXIMAB-DYYB
     Dosage: 5 MG/KG, EVERY 6 WEEKS
     Route: 042
     Dates: start: 20210428
  6. INFLECTRA [Suspect]
     Active Substance: INFLIXIMAB-DYYB
     Dosage: 5 MG/KG, EVERY 6 WEEKS
     Route: 042
     Dates: start: 20210609
  7. INFLECTRA [Suspect]
     Active Substance: INFLIXIMAB-DYYB
     Dosage: 5 MG/KG, EVERY 6 WEEKS
     Route: 042
     Dates: start: 20210609
  8. INFLECTRA [Suspect]
     Active Substance: INFLIXIMAB-DYYB
     Dosage: 5 MG/KG, EVERY 6 WEEKS
     Route: 042
     Dates: start: 20210721
  9. INFLECTRA [Suspect]
     Active Substance: INFLIXIMAB-DYYB
     Dosage: 5 MG/KG, EVERY 6 WEEKS
     Route: 042
     Dates: start: 20211014
  10. INFLECTRA [Suspect]
     Active Substance: INFLIXIMAB-DYYB
     Dosage: 10 MG/KG,EVERY 4 WEEKS
     Route: 042
     Dates: start: 20211123
  11. INFLECTRA [Suspect]
     Active Substance: INFLIXIMAB-DYYB
     Dosage: 10 MG/KG,EVERY 4 WEEKS
     Route: 042
     Dates: start: 20211123, end: 20220802
  12. INFLECTRA [Suspect]
     Active Substance: INFLIXIMAB-DYYB
     Dosage: 10 MG/KG,EVERY 4 WEEKS
     Route: 042
     Dates: start: 20220106
  13. INFLECTRA [Suspect]
     Active Substance: INFLIXIMAB-DYYB
     Dosage: 10 MG/KG,EVERY 4 WEEKS
     Route: 042
     Dates: start: 20220202
  14. INFLECTRA [Suspect]
     Active Substance: INFLIXIMAB-DYYB
     Dosage: 10 MG/KG,EVERY 4 WEEKS
     Route: 042
     Dates: start: 20220303
  15. INFLECTRA [Suspect]
     Active Substance: INFLIXIMAB-DYYB
     Dosage: 10 MG/KG,EVERY 4 WEEKS
     Route: 042
     Dates: start: 20220330
  16. INFLECTRA [Suspect]
     Active Substance: INFLIXIMAB-DYYB
     Dosage: 10 MG/KG,EVERY 4 WEEKS
     Route: 042
     Dates: start: 20220504
  17. INFLECTRA [Suspect]
     Active Substance: INFLIXIMAB-DYYB
     Dosage: 10 MG/KG EVERY 4 WEEKS
     Route: 042
     Dates: start: 20220606
  18. INFLECTRA [Suspect]
     Active Substance: INFLIXIMAB-DYYB
     Dosage: 1000 MG,(SUPPOSED TO RECEIVE 10MG/KG)
     Route: 042
     Dates: start: 20220704
  19. INFLECTRA [Suspect]
     Active Substance: INFLIXIMAB-DYYB
     Dosage: 10 MG/KG EVERY 4 WEEKS
     Route: 042
     Dates: start: 20220802
  20. FLUTICASONE FUROATE [Concomitant]
     Active Substance: FLUTICASONE FUROATE
     Dosage: UNK
  21. NEXIUM I.V. [Concomitant]
     Active Substance: ESOMEPRAZOLE SODIUM
     Dosage: UNK

REACTIONS (4)
  - Condition aggravated [Not Recovered/Not Resolved]
  - Colectomy [Unknown]
  - Off label use [Unknown]
  - Inappropriate schedule of product administration [Unknown]

NARRATIVE: CASE EVENT DATE: 20210202
